FAERS Safety Report 18404395 (Version 1)
Quarter: 2020Q4

REPORT INFORMATION
  Report Type: Spontaneous
  Country: FR (occurrence: FR)
  Receive Date: 20201020
  Receipt Date: 20201020
  Transmission Date: 20210114
  Serious: Yes (Other)
  Sender: FDA-Public Use
  Company Number: FR-SA-2020SA292870

PATIENT

DRUGS (21)
  1. METHOTREXATE. [Suspect]
     Active Substance: METHOTREXATE
     Indication: CUTANEOUS SARCOIDOSIS
     Dosage: 15 MG, QW, REINTRODUCED
  2. INFLIXIMAB [Concomitant]
     Active Substance: INFLIXIMAB
     Indication: PULMONARY SARCOIDOSIS
  3. INFLIXIMAB [Concomitant]
     Active Substance: INFLIXIMAB
     Indication: CUTANEOUS SARCOIDOSIS
  4. ETANERCEPT [Concomitant]
     Active Substance: ETANERCEPT
     Indication: PULMONARY SARCOIDOSIS
  5. LEFLUNOMIDE. [Suspect]
     Active Substance: LEFLUNOMIDE
     Indication: CUTANEOUS SARCOIDOSIS
  6. LEFLUNOMIDE. [Suspect]
     Active Substance: LEFLUNOMIDE
     Indication: SARCOIDOSIS
  7. HYDROXYCHLOROQUINE SULFATE. [Suspect]
     Active Substance: HYDROXYCHLOROQUINE SULFATE
     Indication: SARCOIDOSIS
  8. EFALIZUMAB [Concomitant]
     Active Substance: EFALIZUMAB
     Indication: SARCOIDOSIS
  9. METHOTREXATE. [Suspect]
     Active Substance: METHOTREXATE
     Indication: SARCOIDOSIS
  10. THALIDOMIDE [Concomitant]
     Active Substance: THALIDOMIDE
     Indication: PULMONARY SARCOIDOSIS
  11. THALIDOMIDE [Concomitant]
     Active Substance: THALIDOMIDE
     Indication: SARCOIDOSIS
  12. EFALIZUMAB [Concomitant]
     Active Substance: EFALIZUMAB
     Indication: CUTANEOUS SARCOIDOSIS
  13. LEFLUNOMIDE. [Suspect]
     Active Substance: LEFLUNOMIDE
     Indication: PULMONARY SARCOIDOSIS
     Dosage: 20 MG, QD
  14. HYDROXYCHLOROQUINE SULFATE. [Suspect]
     Active Substance: HYDROXYCHLOROQUINE SULFATE
     Indication: PULMONARY SARCOIDOSIS
  15. INFLIXIMAB [Concomitant]
     Active Substance: INFLIXIMAB
     Indication: SARCOIDOSIS
  16. ETANERCEPT [Concomitant]
     Active Substance: ETANERCEPT
     Indication: SARCOIDOSIS
  17. ETANERCEPT [Concomitant]
     Active Substance: ETANERCEPT
     Indication: CUTANEOUS SARCOIDOSIS
  18. METHOTREXATE. [Suspect]
     Active Substance: METHOTREXATE
     Indication: PULMONARY SARCOIDOSIS
     Dosage: 20 MG, QW
  19. THALIDOMIDE [Concomitant]
     Active Substance: THALIDOMIDE
     Indication: CUTANEOUS SARCOIDOSIS
  20. HYDROXYCHLOROQUINE SULFATE. [Suspect]
     Active Substance: HYDROXYCHLOROQUINE SULFATE
     Indication: CUTANEOUS SARCOIDOSIS
  21. EFALIZUMAB [Concomitant]
     Active Substance: EFALIZUMAB
     Indication: PULMONARY SARCOIDOSIS

REACTIONS (4)
  - Off label use [Unknown]
  - Sarcoidosis [Recovering/Resolving]
  - Rebound effect [Recovering/Resolving]
  - Cutaneous sarcoidosis [Recovering/Resolving]
